FAERS Safety Report 8425762 (Version 6)
Quarter: 2015Q1

REPORT INFORMATION
  Report Type: Report from Study
  Country: US (occurrence: US)
  Receive Date: 20120224
  Receipt Date: 20150114
  Transmission Date: 20150721
  Serious: Yes (Hospitalization)
  Sender: FDA-Public Use
  Company Number: US-ACTELION-A-NJ2012-61302

PATIENT
  Age: 73 Year
  Sex: Female

DRUGS (3)
  1. ARANESP [Concomitant]
     Active Substance: DARBEPOETIN ALFA
  2. OXYGEN. [Concomitant]
     Active Substance: OXYGEN
  3. TRACLEER [Suspect]
     Active Substance: BOSENTAN\BOSENTAN MONOHYDRATE
     Indication: PULMONARY ARTERIAL HYPERTENSION
     Dosage: UNK
     Route: 048
     Dates: start: 20091215

REACTIONS (8)
  - Cellulitis [Unknown]
  - Dyspnoea [Unknown]
  - Multiple allergies [Unknown]
  - Air embolism [Unknown]
  - Transfusion [Unknown]
  - Decubitus ulcer [Unknown]
  - Wound drainage [Unknown]
  - Renal disorder [Unknown]

NARRATIVE: CASE EVENT DATE: 20120113
